FAERS Safety Report 10900653 (Version 1)
Quarter: 2015Q1

REPORT INFORMATION
  Report Type: Spontaneous
  Country: PT (occurrence: PT)
  Receive Date: 20150310
  Receipt Date: 20150310
  Transmission Date: 20150721
  Serious: Yes (Death)
  Sender: FDA-Public Use
  Company Number: PT-CELGENE-PRT-2015025411

PATIENT

DRUGS (3)
  1. AZACITIDINE (NOVAPLUS) [Suspect]
     Active Substance: AZACITIDINE
     Indication: MYELODYSPLASTIC SYNDROME
  2. AZACITIDINE (NOVAPLUS) [Suspect]
     Active Substance: AZACITIDINE
     Indication: CHRONIC MYELOMONOCYTIC LEUKAEMIA
  3. AZACITIDINE (NOVAPLUS) [Suspect]
     Active Substance: AZACITIDINE
     Indication: ACUTE MYELOID LEUKAEMIA
     Route: 065

REACTIONS (3)
  - Disease progression [Fatal]
  - Cerebral haemorrhage [Fatal]
  - Pneumonia [Fatal]
